FAERS Safety Report 25031378 (Version 1)
Quarter: 2025Q1

REPORT INFORMATION
  Report Type: Spontaneous
  Country: US (occurrence: None)
  Receive Date: 20250301
  Receipt Date: 20250301
  Transmission Date: 20250408
  Serious: Yes (Hospitalization)
  Sender: FDA-CTU
  Company Number: None

PATIENT
  Sex: Male

DRUGS (4)
  1. AMBRISENTAN [Suspect]
     Active Substance: AMBRISENTAN
     Indication: Pulmonary arterial hypertension
     Dosage: FREQUENCY : DAILY;?
     Route: 048
     Dates: start: 202003
  2. TYVASO DPI [Suspect]
     Active Substance: TREPROSTINIL
  3. TWASO DPI MAINT KIT POW [Concomitant]
  4. TYVASO DPI MAINT KIT PWD [Concomitant]

REACTIONS (1)
  - Appendicitis [None]
